FAERS Safety Report 10381889 (Version 2)
Quarter: 2014Q3

REPORT INFORMATION
  Report Type: Spontaneous
  Country: FI (occurrence: FI)
  Receive Date: 20140813
  Receipt Date: 20140916
  Transmission Date: 20150326
  Serious: Yes (Hospitalization)
  Sender: FDA-Public Use
  Company Number: FI-GLAXOSMITHKLINE-B1022940A

PATIENT
  Age: 67 Year
  Sex: Female

DRUGS (9)
  1. BISOPROLOL [Concomitant]
     Active Substance: BISOPROLOL
     Indication: CARDIAC FAILURE
     Dosage: 2.5MG PER DAY
  2. PANADOL [Concomitant]
     Active Substance: ACETAMINOPHEN
     Dates: start: 20140528
  3. TRAMAL [Concomitant]
     Active Substance: TRAMADOL
     Dosage: 150MG PER DAY
     Route: 048
     Dates: start: 20140626
  4. SOMAC [Concomitant]
     Active Substance: PANTOPRAZOLE SODIUM
     Indication: GASTRIC DISORDER
     Dosage: 40MG PER DAY
     Route: 048
     Dates: start: 20140528
  5. ATORVASTATIN [Concomitant]
     Active Substance: ATORVASTATIN
     Indication: CARDIAC FAILURE
     Dosage: 40MG PER DAY
  6. KALCIPOS D [Concomitant]
     Dosage: 2TAB PER DAY
     Route: 048
  7. VOTRIENT [Suspect]
     Active Substance: PAZOPANIB HYDROCHLORIDE
     Indication: RENAL CANCER
     Dosage: 800MG PER DAY
     Route: 048
     Dates: start: 20140722
  8. CARDACE [Concomitant]
     Active Substance: RAMIPRIL
     Indication: CARDIAC FAILURE
     Dosage: 2.5MG PER DAY
  9. XGEVA [Concomitant]
     Active Substance: DENOSUMAB
     Indication: RENAL CANCER
     Route: 058
     Dates: start: 20140416

REACTIONS (4)
  - Electrocardiogram ST segment elevation [Unknown]
  - Electrocardiogram T wave inversion [Unknown]
  - Chest pain [Not Recovered/Not Resolved]
  - Cardiac disorder [Not Recovered/Not Resolved]

NARRATIVE: CASE EVENT DATE: 20140724
